FAERS Safety Report 7656372-8 (Version None)
Quarter: 2011Q3

REPORT INFORMATION
  Report Type: 
  Country: None (occurrence: None)
  Receive Date: 20110804
  Receipt Date: 20110725
  Transmission Date: 20111222
  Serious: Yes (Other)
  Sender: FDA-Public Use
  Company Number: US-GLAXOSMITHKLINE-A0931649A

PATIENT
  Age: 44 Year
  Sex: Male

DRUGS (2)
  1. GEODON [Suspect]
     Indication: BIPOLAR DISORDER
     Dosage: 60MG AT NIGHT
     Route: 048
     Dates: start: 20110201, end: 20110501
  2. LAMICTAL [Suspect]
     Indication: PRODUCT USED FOR UNKNOWN INDICATION
     Dosage: 100MG PER DAY
     Route: 048

REACTIONS (3)
  - POST CONCUSSION SYNDROME [None]
  - DYSPHAGIA [None]
  - BIPOLAR DISORDER [None]
